FAERS Safety Report 9284297 (Version 2)
Quarter: 2013Q2

REPORT INFORMATION
  Report Type: Spontaneous
  Country: AU (occurrence: AU)
  Receive Date: 20130510
  Receipt Date: 20130606
  Transmission Date: 20140414
  Serious: Yes (Death)
  Sender: FDA-Public Use
  Company Number: AU-B.I. PHARMACEUTICALS,INC./RIDGEFIELD-2013-AU-00554AU

PATIENT
  Sex: Male

DRUGS (6)
  1. PRADAXA [Suspect]
     Indication: ATRIAL FIBRILLATION
     Dosage: 220 MG
  2. DILATREND [Concomitant]
  3. LANOXIN [Concomitant]
  4. LASIX [Concomitant]
  5. OROXINE [Concomitant]
  6. SLOW K [Concomitant]

REACTIONS (1)
  - Cardiac failure [Fatal]
